FAERS Safety Report 10086601 (Version 1)
Quarter: 2014Q2

REPORT INFORMATION
  Report Type: Spontaneous
  Country: ES (occurrence: ES)
  Receive Date: 20140418
  Receipt Date: 20140418
  Transmission Date: 20141212
  Serious: Yes (Other)
  Sender: FDA-Public Use
  Company Number: ES-PFIZER INC-2014104392

PATIENT
  Age: 57 Year
  Sex: Female

DRUGS (2)
  1. TOVIAZ [Suspect]
     Indication: URINARY INCONTINENCE
     Dosage: 8 MG, UNK
     Route: 048
  2. IRON [Concomitant]
     Dosage: UNK

REACTIONS (2)
  - Throat tightness [Unknown]
  - Dysphagia [Unknown]
